FAERS Safety Report 15477926 (Version 1)
Quarter: 2018Q4

REPORT INFORMATION
  Report Type: Spontaneous
  Country: DE (occurrence: DE)
  Receive Date: 20181009
  Receipt Date: 20181009
  Transmission Date: 20190205
  Serious: Yes (Other)
  Sender: FDA-Public Use
  Company Number: DE-SA-2018SA276617

PATIENT
  Age: 73 Year
  Sex: Female
  Weight: 77 kg

DRUGS (5)
  1. PRALUENT [Suspect]
     Active Substance: ALIROCUMAB
     Indication: HYPERCHOLESTEROLAEMIA
     Dosage: 150 MG, 1X
     Route: 058
  2. CANDESARTAN. [Concomitant]
     Active Substance: CANDESARTAN
     Indication: HYPERTENSION
     Route: 048
  3. BISOPROLOL [Concomitant]
     Active Substance: BISOPROLOL
     Indication: ARTERIOSCLEROSIS CORONARY ARTERY
     Route: 048
  4. ASPIRIN. [Concomitant]
     Active Substance: ASPIRIN
     Indication: ARTERIOSCLEROSIS CORONARY ARTERY
     Route: 048
  5. PRALUENT [Suspect]
     Active Substance: ALIROCUMAB
     Dosage: 75 UNK
     Route: 058
     Dates: start: 20180416

REACTIONS (3)
  - Herpes zoster [Not Recovered/Not Resolved]
  - Pain [Not Recovered/Not Resolved]
  - Fat tissue increased [Not Recovered/Not Resolved]

NARRATIVE: CASE EVENT DATE: 20180902
